FAERS Safety Report 7440341-7 (Version None)
Quarter: 2011Q2

REPORT INFORMATION
  Report Type: 
  Country: None (occurrence: None)
  Receive Date: 20110427
  Receipt Date: 20110420
  Transmission Date: 20111010
  Serious: Yes (Hospitalization)
  Sender: FDA-Public Use
  Company Number: JP-MERCK-1104USA03289

PATIENT
  Age: 79 Year
  Sex: Male

DRUGS (3)
  1. DIGITALIS [Concomitant]
     Route: 048
  2. WARFARIN POTASSIUM [Concomitant]
     Route: 048
  3. JANUVIA [Suspect]
     Indication: TYPE 2 DIABETES MELLITUS
     Route: 048
     Dates: start: 20110201, end: 20110416

REACTIONS (1)
  - RENAL FAILURE ACUTE [None]
